FAERS Safety Report 14816201 (Version 4)
Quarter: 2018Q3

REPORT INFORMATION
  Report Type: Spontaneous
  Country: JP (occurrence: JP)
  Receive Date: 20180426
  Receipt Date: 20180807
  Transmission Date: 20181010
  Serious: Yes (Other)
  Sender: FDA-Public Use
  Company Number: PHJP2018JP009128

PATIENT
  Age: 45 Year
  Sex: Female

DRUGS (1)
  1. ZOMETA [Suspect]
     Active Substance: ZOLEDRONIC ACID
     Indication: METASTASES TO BONE
     Dosage: UNK
     Route: 041

REACTIONS (4)
  - Pain [Unknown]
  - Exposed bone in jaw [Unknown]
  - Osteonecrosis of jaw [Unknown]
  - Purulence [Unknown]

NARRATIVE: CASE EVENT DATE: 20150519
